FAERS Safety Report 7981849-5 (Version None)
Quarter: 2011Q4

REPORT INFORMATION
  Report Type: 
  Country: None (occurrence: None)
  Receive Date: 20111215
  Receipt Date: 20111213
  Transmission Date: 20120403
  Serious: Yes (Other)
  Sender: FDA-Public Use
  Company Number: US-PFIZER INC-2011226447

PATIENT
  Sex: Male

DRUGS (3)
  1. CHANTIX [Suspect]
     Dosage: UNK
  2. CHANTIX [Suspect]
     Indication: SMOKING CESSATION THERAPY
     Dosage: UNK
  3. CHANTIX [Suspect]
     Dosage: UNK

REACTIONS (5)
  - SUICIDAL IDEATION [None]
  - PANIC ATTACK [None]
  - NEGATIVE THOUGHTS [None]
  - DYSPNOEA [None]
  - THINKING ABNORMAL [None]
